FAERS Safety Report 8016384-1 (Version None)
Quarter: 2011Q4

REPORT INFORMATION
  Report Type: 
  Country: None (occurrence: None)
  Receive Date: 20111230
  Receipt Date: 20111226
  Transmission Date: 20120403
  Serious: Yes (Hospitalization, Other)
  Sender: FDA-Public Use
  Company Number: US-ROCHE-720968

PATIENT

DRUGS (14)
  1. CYCLOPHOSPHAMIDE [Suspect]
     Dosage: PHASE II.
     Route: 065
  2. MABTHERA [Suspect]
     Indication: B-CELL LYMPHOMA
     Dosage: ON DAY 1 OF 21 DAYS CYCLE. PHASE I.
     Route: 065
  3. MABTHERA [Suspect]
     Dosage: PHASE II.
     Route: 065
  4. CYCLOPHOSPHAMIDE [Suspect]
     Indication: B-CELL LYMPHOMA
     Dosage: ON DAY 1 OF 21 DAYS CYCLE. PHASE I.
     Route: 065
  5. LENALIDOMIDE [Suspect]
     Dosage: PHASE II
     Route: 065
  6. VINCRISTINE [Suspect]
     Dosage: PHASE II.
     Route: 065
  7. PEGFILGRASTIM [Concomitant]
     Dosage: ON DAY 2 OF 21 DAYS CYCLE
     Route: 058
  8. DOXORUBICIN HCL [Suspect]
     Indication: B-CELL LYMPHOMA
     Dosage: ON DAY 1 OF 21 DAYS CYCLE. PHASE I.
     Route: 065
  9. PREDNISOLONE [Suspect]
     Indication: B-CELL LYMPHOMA
     Dosage: ON DAYS 1-5 OF 21 DAYS CYCLE. PHASE I.
     Route: 065
  10. ASPIRIN [Concomitant]
     Indication: PROPHYLAXIS
  11. LENALIDOMIDE [Suspect]
     Indication: B-CELL LYMPHOMA
     Dosage: ON DAYS 1-10. PHASE I.
     Route: 065
  12. VINCRISTINE [Suspect]
     Indication: B-CELL LYMPHOMA
     Dosage: ON DAY 1. PHASE I.
     Route: 065
  13. PREDNISOLONE [Suspect]
     Dosage: PHASE II.
     Route: 065
  14. DOXORUBICIN HYDROCHLORIDE [Suspect]
     Dosage: PHASE II.
     Route: 065

REACTIONS (11)
  - THROMBOCYTOPENIA [None]
  - DEHYDRATION [None]
  - NEUROPATHY PERIPHERAL [None]
  - FEBRILE NEUTROPENIA [None]
  - THROMBOSIS [None]
  - SKIN INFECTION [None]
  - ANAEMIA [None]
  - PNEUMONIA [None]
  - FATIGUE [None]
  - NEUTROPENIA [None]
  - URINARY TRACT INFECTION [None]
